FAERS Safety Report 19415752 (Version 1)
Quarter: 2021Q2

REPORT INFORMATION
  Report Type: Spontaneous
  Country: US (occurrence: US)
  Receive Date: 20210614
  Receipt Date: 20210614
  Transmission Date: 20210717
  Serious: No
  Sender: FDA-Public Use
  Company Number: US-PERRIGO-21US003585

PATIENT
  Age: 60 Year
  Sex: Female
  Weight: 80.73 kg

DRUGS (1)
  1. LOPERAMIDE?SIMETHICONE [Suspect]
     Active Substance: DIMETHICONE\LOPERAMIDE HYDROCHLORIDE
     Indication: PROPHYLAXIS AGAINST DIARRHOEA
     Dosage: 2 TABLETS, QD, PRN
     Route: 048
     Dates: start: 20180905, end: 20210308

REACTIONS (4)
  - Pelvic floor dysfunction [Not Recovered/Not Resolved]
  - Off label use [Recovered/Resolved]
  - Urinary tract infection [Recovered/Resolved]
  - Drug dependence [Not Recovered/Not Resolved]

NARRATIVE: CASE EVENT DATE: 20180905
